FAERS Safety Report 4649120-7 (Version None)
Quarter: 2005Q2

REPORT INFORMATION
  Report Type: 
  Country: None (occurrence: None)
  Receive Date: 20050429
  Receipt Date: 20050415
  Transmission Date: 20051028
  Serious: Yes (Hospitalization)
  Sender: FDA-Public Use
  Company Number: JP-GLAXOSMITHKLINE-B0378228A

PATIENT
  Age: 70 Year
  Sex: Male
  Weight: 63 kg

DRUGS (2)
  1. VALTREX [Suspect]
     Indication: HERPES SIMPLEX
     Dosage: 500MG TWICE PER DAY
     Route: 048
     Dates: start: 20050405, end: 20050410
  2. PERYCIT [Concomitant]
     Indication: PERIPHERAL VASCULAR DISORDER
     Dosage: 750MG PER DAY
     Route: 048
     Dates: start: 20050406, end: 20050420

REACTIONS (7)
  - ABASIA [None]
  - DELUSION [None]
  - DEPRESSED LEVEL OF CONSCIOUSNESS [None]
  - DYSKINESIA [None]
  - INCOHERENT [None]
  - SPEECH DISORDER [None]
  - TREMOR [None]
